FAERS Safety Report 11434526 (Version 2)
Quarter: 2015Q3

REPORT INFORMATION
  Report Type: Other
  Country: IT (occurrence: IT)
  Receive Date: 20150831
  Receipt Date: 20150904
  Transmission Date: 20151125
  Serious: Yes (Hospitalization)
  Sender: FDA-Public Use
  Company Number: IT-MYLANLABS-2015M1028996

PATIENT

DRUGS (6)
  1. VERTISERC [Concomitant]
     Active Substance: BETAHISTINE HYDROCHLORIDE
     Indication: MENIERE^S DISEASE
     Route: 048
     Dates: end: 20150818
  2. CONVERTEN [Concomitant]
     Indication: HYPERTENSION
     Dosage: 20 MG
     Route: 048
     Dates: end: 20150818
  3. BISOPROLOLO [Suspect]
     Active Substance: BISOPROLOL FUMARATE
     Indication: ATRIAL FIBRILLATION
     Dosage: 1.25 MG DAILY
     Route: 048
     Dates: start: 20121025, end: 20150817
  4. LANOXIN [Suspect]
     Active Substance: DIGOXIN
     Indication: ATRIAL FIBRILLATION
     Dosage: .25 MG DAILY
     Route: 048
     Dates: start: 20111119, end: 20150817
  5. COUMADINE [Suspect]
     Active Substance: WARFARIN SODIUM
     Indication: ATRIAL FIBRILLATION
     Dosage: 5 MG AS NECESSARY
     Route: 048
     Dates: start: 20110119, end: 20150817
  6. COUMADINE [Suspect]
     Active Substance: WARFARIN SODIUM
     Dosage: 1 DF, UNK

REACTIONS (6)
  - Fall [Recovering/Resolving]
  - Loss of consciousness [Recovering/Resolving]
  - Intentional overdose [Unknown]
  - Subcutaneous haematoma [Recovering/Resolving]
  - Syncope [Recovering/Resolving]
  - Blood pressure abnormal [Recovering/Resolving]

NARRATIVE: CASE EVENT DATE: 20150817
